FAERS Safety Report 7290382-8 (Version None)
Quarter: 2011Q1

REPORT INFORMATION
  Report Type: 
  Country: None (occurrence: None)
  Receive Date: 20110214
  Receipt Date: 20110203
  Transmission Date: 20110831
  Serious: Yes (Hospitalization)
  Sender: FDA-Public Use
  Company Number: IT-ASTRAZENECA-2011SE06289

PATIENT
  Sex: Female

DRUGS (5)
  1. EUTIROX [Concomitant]
     Route: 048
  2. ANTRA [Suspect]
     Indication: ABDOMINAL PAIN UPPER
     Route: 048
     Dates: start: 20101130, end: 20101206
  3. TOPAMAX [Concomitant]
  4. ACTIVATED CHARCOAL [Concomitant]
  5. PANTORC [Suspect]
     Indication: ABDOMINAL PAIN UPPER
     Route: 051
     Dates: start: 20101206, end: 20101206

REACTIONS (6)
  - HEADACHE [None]
  - ERYTHEMA [None]
  - FORMICATION [None]
  - RESPIRATORY FATIGUE [None]
  - ABDOMINAL PAIN [None]
  - COUGH [None]
